FAERS Safety Report 7358400-6 (Version None)
Quarter: 2011Q1

REPORT INFORMATION
  Report Type: 
  Country: None (occurrence: None)
  Receive Date: 20110317
  Receipt Date: 20101221
  Transmission Date: 20110831
  Serious: No
  Sender: FDA-Public Use
  Company Number: US-BAYER-2011-011893

PATIENT
  Sex: Female
  Weight: 61 kg

DRUGS (4)
  1. ADVAIR DISKUS 100/50 [Concomitant]
  2. ALEVE (CAPLET) [Suspect]
     Indication: PAIN
  3. HYDROCHLOROTHIAZIDE [Concomitant]
  4. LOVASTATIN [Concomitant]

REACTIONS (2)
  - MIDDLE INSOMNIA [None]
  - FATIGUE [None]
